FAERS Safety Report 25189284 (Version 1)
Quarter: 2025Q2

REPORT INFORMATION
  Report Type: Spontaneous
  Country: US (occurrence: US)
  Receive Date: 20250411
  Receipt Date: 20250411
  Transmission Date: 20250717
  Serious: Yes (Hospitalization, Other)
  Sender: RANBAXY
  Company Number: US-SUN PHARMACEUTICAL INDUSTRIES LTD-2025R1-502416

PATIENT
  Age: 4 Year
  Sex: Male

DRUGS (1)
  1. PREDNISONE [Suspect]
     Active Substance: PREDNISONE
     Indication: Steroid therapy
     Dosage: 10 MILLIGRAM, BID
     Route: 065

REACTIONS (3)
  - Therapeutic response decreased [Unknown]
  - Disease progression [Unknown]
  - Dyspnoea [Unknown]
